FAERS Safety Report 8185618-5 (Version None)
Quarter: 2012Q1

REPORT INFORMATION
  Report Type: 
  Country: None (occurrence: None)
  Receive Date: 20120305
  Receipt Date: 20120229
  Transmission Date: 20120608
  Serious: Yes (Other)
  Sender: FDA-Public Use
  Company Number: HR-PFIZER INC-2012053090

PATIENT
  Age: 74 Year
  Sex: Female
  Weight: 81 kg

DRUGS (9)
  1. HYGROTON [Concomitant]
     Dosage: 25 MG, ALTERNATE DAY
     Route: 048
  2. LYRICA [Suspect]
     Indication: EPILEPSY
     Dosage: 75 MG, 2X/DAY
     Dates: start: 20120127, end: 20120201
  3. TINIDIL [Concomitant]
     Dosage: 5 MG, AS NEEDED
     Dates: start: 20010101
  4. SIMVASTATIN [Concomitant]
     Indication: HYPERLIPIDAEMIA
     Dosage: 20 MG, 1X/DAY
     Dates: start: 20020101
  5. TOPAMAX [Concomitant]
     Indication: EPILEPSY
     Dosage: 50 MG, 2X/DAY
     Route: 048
     Dates: start: 20020806
  6. PHENOBARBITAL TAB [Concomitant]
     Indication: EPILEPSY
     Dosage: 200 MG, UNK
     Route: 048
     Dates: start: 20060111
  7. PHYSIOTENS [Concomitant]
     Dosage: 0.2 MG, 1X/DAY
     Route: 048
     Dates: start: 20100225
  8. TRANDOLAPRIL [Concomitant]
     Indication: ESSENTIAL HYPERTENSION
     Dosage: 2 MG, 2X/DAY
     Route: 048
     Dates: start: 20020101
  9. TARKA [Concomitant]
     Dosage: 1 DF, 1X/DAY
     Route: 048
     Dates: start: 20060123

REACTIONS (2)
  - BLOOD PRESSURE INCREASED [None]
  - TACHYCARDIA [None]
